FAERS Safety Report 11925233 (Version 2)
Quarter: 2016Q1

REPORT INFORMATION
  Report Type: Spontaneous
  Country: US (occurrence: US)
  Receive Date: 20160118
  Receipt Date: 20160314
  Transmission Date: 20160526
  Serious: No
  Sender: FDA-Public Use
  Company Number: US-AMGEN-USASP2016005023

PATIENT
  Age: 44 Year
  Sex: Male

DRUGS (2)
  1. TRIAMCINOLON                       /00031901/ [Concomitant]
     Dosage: 0.1 UNK, UNK
  2. ENBREL [Suspect]
     Active Substance: ETANERCEPT
     Indication: PSORIASIS
     Dosage: 50 MG, ONCE WEEKLY ON THE SAME DAY OF THE WEEK
     Route: 058
     Dates: start: 20151112

REACTIONS (3)
  - Nasopharyngitis [Unknown]
  - Dizziness [Unknown]
  - Skin texture abnormal [Not Recovered/Not Resolved]

NARRATIVE: CASE EVENT DATE: 201512
